FAERS Safety Report 8038373-3 (Version None)
Quarter: 2012Q1

REPORT INFORMATION
  Report Type: 
  Country: None (occurrence: None)
  Receive Date: 20120111
  Receipt Date: 20111208
  Transmission Date: 20120608
  Serious: No
  Sender: FDA-Public Use
  Company Number: US-AMGEN-USASP2011059041

PATIENT
  Age: 49 Year
  Sex: Female
  Weight: 68.027 kg

DRUGS (10)
  1. PREDNISONE TAB [Concomitant]
     Dosage: UNK
  2. METOPROLOL SUCCINATE [Concomitant]
     Dosage: UNK
  3. WELLBUTRIN [Concomitant]
     Dosage: UNK
  4. TRAMADOL HCL [Concomitant]
     Dosage: UNK
  5. IBUPROFEN [Concomitant]
     Dosage: UNK
  6. AMBIEN [Concomitant]
     Dosage: UNK
  7. ENBREL [Suspect]
     Indication: RHEUMATOID ARTHRITIS
     Dosage: 50 MG, QWK
     Route: 058
     Dates: start: 20110809, end: 20111020
  8. FOLIC ACID [Concomitant]
     Dosage: UNK
  9. METHOTREXATE [Concomitant]
     Dosage: UNK
  10. PRILOSEC [Concomitant]
     Dosage: UNK

REACTIONS (2)
  - URTICARIA [None]
  - DRUG INEFFECTIVE [None]
